FAERS Safety Report 21144208 (Version 1)
Quarter: 2022Q3

REPORT INFORMATION
  Report Type: Spontaneous
  Country: CA (occurrence: CA)
  Receive Date: 20220728
  Receipt Date: 20220728
  Transmission Date: 20221027
  Serious: Yes (Other)
  Sender: FDA-Public Use
  Company Number: CA-Concordia Pharmaceuticals Inc.-GSH201702-001128

PATIENT

DRUGS (12)
  1. HYDROXYCHLOROQUINE [Suspect]
     Active Substance: HYDROXYCHLOROQUINE
     Indication: Rheumatoid arthritis
     Dosage: 200 MG, BID
     Route: 065
     Dates: start: 200711, end: 200804
  2. HYDROXYCHLOROQUINE [Suspect]
     Active Substance: HYDROXYCHLOROQUINE
     Dosage: 200 MG, BID
     Route: 065
     Dates: start: 201409
  3. HYDROXYCHLOROQUINE SULFATE [Suspect]
     Active Substance: HYDROXYCHLOROQUINE SULFATE
     Indication: Rheumatoid arthritis
     Dosage: 200 MG, BID
     Route: 065
     Dates: start: 200711, end: 200804
  4. METHOTREXATE SODIUM [Suspect]
     Active Substance: METHOTREXATE SODIUM
     Indication: Rheumatoid arthritis
     Dosage: 25 MG
     Route: 058
     Dates: start: 2007, end: 2008
  5. METHOTREXATE SODIUM [Suspect]
     Active Substance: METHOTREXATE SODIUM
     Dosage: 25 MG
     Route: 058
     Dates: start: 20080314, end: 2008
  6. METHOTREXATE SODIUM [Suspect]
     Active Substance: METHOTREXATE SODIUM
     Dosage: 20 MG, WEEKLY (QW)
     Route: 048
  7. SULFASALAZINE [Suspect]
     Active Substance: SULFASALAZINE
     Indication: Rheumatoid arthritis
     Dosage: 1 G, QD
     Route: 048
     Dates: start: 20071221, end: 20080211
  8. FOLIC ACID [Concomitant]
     Active Substance: FOLIC ACID
     Dosage: UNK
  9. NAPROXEN [Concomitant]
     Active Substance: NAPROXEN
     Dosage: UNK
  10. ESOMEPRAZOLE MAGNESIUM [Concomitant]
     Active Substance: ESOMEPRAZOLE MAGNESIUM
     Dosage: UNK
  11. MELOXICAM [Concomitant]
     Active Substance: MELOXICAM
     Dosage: UNK
  12. TYLENOL [Concomitant]
     Active Substance: ACETAMINOPHEN
     Dosage: UNK

REACTIONS (13)
  - Axillary mass [Not Recovered/Not Resolved]
  - Condition aggravated [Not Recovered/Not Resolved]
  - Drug hypersensitivity [Unknown]
  - Dry mouth [Unknown]
  - Interstitial lung disease [Unknown]
  - Ocular hyperaemia [Unknown]
  - Rheumatoid arthritis [Unknown]
  - Rash pruritic [Not Recovered/Not Resolved]
  - Photophobia [Unknown]
  - Rash [Unknown]
  - Pruritus [Unknown]
  - Drug intolerance [Unknown]
  - Drug ineffective [Unknown]
